FAERS Safety Report 14363294 (Version 3)
Quarter: 2019Q1

REPORT INFORMATION
  Report Type: Spontaneous
  Country: US (occurrence: US)
  Receive Date: 20180108
  Receipt Date: 20190227
  Transmission Date: 20190417
  Serious: Yes (Hospitalization, Other)
  Sender: FDA-Public Use
  Company Number: US-PFIZER INC-2018005430

PATIENT
  Age: 66 Year
  Sex: Male
  Weight: 72.56 kg

DRUGS (7)
  1. CEFEPIME HCL [Suspect]
     Active Substance: CEFEPIME HYDROCHLORIDE
     Indication: PSEUDOMONAS INFECTION
  2. RAPAMUNE [Concomitant]
     Active Substance: SIROLIMUS
     Dosage: 1 MG, 1X/DAY
     Dates: start: 201601, end: 201709
  3. TACROLIMUS. [Concomitant]
     Active Substance: TACROLIMUS
     Dosage: UNK
     Dates: end: 201601
  4. CEFEPIME HCL [Suspect]
     Active Substance: CEFEPIME HYDROCHLORIDE
     Indication: PNEUMONIA
     Dosage: INFUSION THREE TIMES DAILY (HIGHEST DOSE ALLOWED)
     Route: 042
     Dates: start: 20170822, end: 20170908
  5. CICLOSPORIN [Concomitant]
     Active Substance: CYCLOSPORINE
     Indication: IMMUNOSUPPRESSION
     Dosage: 75 MG, 2X/DAY
     Route: 048
     Dates: start: 201709
  6. RAPAMUNE [Concomitant]
     Active Substance: SIROLIMUS
     Indication: LIVER TRANSPLANT
     Dosage: 1 MG, 1X/DAY
     Dates: start: 2014
  7. CICLOSPORIN [Concomitant]
     Active Substance: CYCLOSPORINE
     Dosage: 50 MG, 2X/DAY

REACTIONS (10)
  - Glomerular filtration rate decreased [Unknown]
  - Drug hypersensitivity [Unknown]
  - Encephalopathy [Recovered/Resolved]
  - Necrosis [Unknown]
  - Speech disorder [Unknown]
  - Protein urine present [Unknown]
  - Nephritis [Recovering/Resolving]
  - Gait inability [Unknown]
  - Renal impairment [Recovering/Resolving]
  - Fatigue [Unknown]

NARRATIVE: CASE EVENT DATE: 201708
